FAERS Safety Report 5880238-7 (Version None)
Quarter: 2008Q3

REPORT INFORMATION
  Report Type: 
  Country: None (occurrence: None)
  Receive Date: 20080911
  Receipt Date: 20080911
  Transmission Date: 20090109
  Serious: No
  Sender: FDA-Public Use
  Company Number: None

PATIENT
  Age: 67 Year
  Sex: Female
  Weight: 101.1521 kg

DRUGS (1)
  1. ZESTORETIC [Suspect]
     Indication: HYPERTENSION
     Dosage: 20/12.5 DAILY PO
     Route: 048
     Dates: start: 20050401, end: 20050501

REACTIONS (2)
  - BLOOD PRESSURE INADEQUATELY CONTROLLED [None]
  - THERAPEUTIC RESPONSE UNEXPECTED WITH DRUG SUBSTITUTION [None]
